FAERS Safety Report 19086440 (Version 1)
Quarter: 2021Q2

REPORT INFORMATION
  Report Type: Spontaneous
  Country: US (occurrence: US)
  Receive Date: 20210401
  Receipt Date: 20210401
  Transmission Date: 20210717
  Serious: Yes (Disabling)
  Sender: FDA-Public Use
  Company Number: None

PATIENT
  Age: 2 Year
  Sex: Male
  Weight: 13.5 kg

DRUGS (1)
  1. MIRALAX [Suspect]
     Active Substance: POLYETHYLENE GLYCOL 3350
     Indication: CONSTIPATION
     Dosage: ?          QUANTITY:1 CAPFUL;?
     Route: 048
     Dates: start: 20200301, end: 20210327

REACTIONS (9)
  - Fear [None]
  - Insomnia [None]
  - Tic [None]
  - Failure to thrive [None]
  - Paranoia [None]
  - Anxiety [None]
  - Autism spectrum disorder [None]
  - Obsessive-compulsive disorder [None]
  - Anger [None]

NARRATIVE: CASE EVENT DATE: 20210327
